FAERS Safety Report 9516064 (Version 4)
Quarter: 2013Q4

REPORT INFORMATION
  Report Type: Spontaneous
  Country: US (occurrence: US)
  Receive Date: 20130911
  Receipt Date: 20131211
  Transmission Date: 20140711
  Serious: Yes (Death, Other)
  Sender: FDA-Public Use
  Company Number: US-PFIZER INC-2013118564

PATIENT
  Age: 76 Year
  Sex: Male

DRUGS (10)
  1. LYRICA [Suspect]
     Indication: NEUROPATHY PERIPHERAL
     Dosage: 75 MG, 2X/DAY
     Route: 048
     Dates: start: 20130410
  2. ATROVENT [Concomitant]
     Dosage: 2 SPRAYS, 3X/DAY
     Route: 045
  3. FLONASE [Concomitant]
     Dosage: 2 SPRAYS EACH NOSTRIL, 1X/DAY
     Route: 045
  4. VIBRAMYCIN [Concomitant]
     Indication: RASH
     Dosage: 1 CAP, 2X/DAY
     Route: 048
  5. ZOPRAN ODT [Concomitant]
     Indication: NAUSEA
     Dosage: 8 MG, EVERY 12 HOURS AS NEEDED
     Route: 060
  6. COMPAZINE [Concomitant]
     Indication: NAUSEA
     Dosage: 10 MG, EVERY 6-8 HOURS AS NEEDED
     Route: 048
  7. ATIVAN [Concomitant]
     Indication: NAUSEA
     Dosage: 1 MG TABLET, TAKE HALF TO ONE TABLET EVERY 4-6 HOURS AS NEEDED
     Route: 060
  8. ATIVAN [Concomitant]
     Indication: INSOMNIA
  9. BENADRYL [Concomitant]
     Indication: RASH
     Dosage: 25 MG TABLET: TAKE 1-2 EVERY 6 HOURS AS NEEDED
     Route: 048
  10. IBUPROFEN [Concomitant]
     Indication: PAIN
     Dosage: 800: 1 EVERY 10-12 HOURS AS NEEDED
     Route: 048

REACTIONS (3)
  - Lung adenocarcinoma stage IV [Fatal]
  - Convulsion [Unknown]
  - Hypotension [Unknown]
